FAERS Safety Report 10221632 (Version 1)
Quarter: 2014Q2

REPORT INFORMATION
  Report Type: Spontaneous
  Country: RU (occurrence: RU)
  Receive Date: 20140606
  Receipt Date: 20140606
  Transmission Date: 20141212
  Serious: Yes (Other)
  Sender: FDA-Public Use
  Company Number: RU-BAYER-2014-081007

PATIENT
  Sex: Female

DRUGS (1)
  1. THERAFLEX [Suspect]

REACTIONS (1)
  - Angioedema [None]
